FAERS Safety Report 8593937-3 (Version None)
Quarter: 2012Q3

REPORT INFORMATION
  Report Type: 
  Country: None (occurrence: None)
  Receive Date: 20120814
  Receipt Date: 20120803
  Transmission Date: 20120928
  Serious: Yes (Disabling)
  Sender: FDA-Public Use
  Company Number: US-PERRIGO-12US006812

PATIENT
  Sex: Female
  Weight: 99.773 kg

DRUGS (1)
  1. PHENOL 1.4% CHERRY 328 [Suspect]
     Indication: OROPHARYNGEAL PAIN
     Dosage: 1 OR 2 SPRAYS TO BACK OF THROAT, SINGLE
     Route: 048
     Dates: start: 20120302, end: 20120302

REACTIONS (7)
  - PHARYNGEAL OEDEMA [None]
  - MOUTH INJURY [None]
  - OROPHARYNGEAL PAIN [None]
  - THERMAL BURN [None]
  - PHARYNGEAL ERYTHEMA [None]
  - DYSPHAGIA [None]
  - THROAT IRRITATION [None]
